FAERS Safety Report 9499721 (Version 1)
Quarter: 2013Q3

REPORT INFORMATION
  Report Type: Spontaneous
  Country: US (occurrence: None)
  Receive Date: 20130903
  Receipt Date: 20130903
  Transmission Date: 20140515
  Serious: Yes (Hospitalization)
  Sender: FDA-Public Use
  Company Number: None

PATIENT
  Age: 24 Year
  Sex: Female
  Weight: 113.4 kg

DRUGS (1)
  1. LAMOTRIGINE EXTENDED RELEASE [Suspect]
     Indication: CONVULSION
     Route: 048

REACTIONS (2)
  - Product substitution issue [None]
  - Convulsion [None]
